FAERS Safety Report 9767744 (Version 2)
Quarter: 2014Q1

REPORT INFORMATION
  Report Type: Spontaneous
  Country: US (occurrence: US)
  Receive Date: 20131217
  Receipt Date: 20140115
  Transmission Date: 20141002
  Serious: Yes (Other)
  Sender: FDA-Public Use
  Company Number: US-TEVA-451032USA

PATIENT
  Age: 39 Year
  Sex: Female
  Weight: 64.47 kg

DRUGS (3)
  1. PARAGARD 380A [Suspect]
     Indication: CONTRACEPTION
     Dates: start: 20131030, end: 20131211
  2. PARAGARD 380A [Suspect]
     Route: 015
     Dates: start: 20131230
  3. PRENATAL VITAMINS [Concomitant]
     Indication: BREAST FEEDING

REACTIONS (2)
  - Device dislocation [Recovered/Resolved]
  - Exposure during breast feeding [Unknown]
